FAERS Safety Report 20328172 (Version 2)
Quarter: 2022Q1

REPORT INFORMATION
  Report Type: Report from Study
  Country: US (occurrence: None)
  Receive Date: 20220112
  Receipt Date: 20220114
  Transmission Date: 20220424
  Serious: Yes (Death)
  Sender: FDA-Public Use
  Company Number: 2022A015529

PATIENT

DRUGS (1)
  1. FARXIGA [Suspect]
     Active Substance: DAPAGLIFLOZIN PROPANEDIOL
     Route: 048

REACTIONS (1)
  - Death [Fatal]
